FAERS Safety Report 7868390-5 (Version None)
Quarter: 2011Q4

REPORT INFORMATION
  Report Type: 
  Country: None (occurrence: None)
  Receive Date: 20111028
  Receipt Date: 20101214
  Transmission Date: 20120403
  Serious: No
  Sender: FDA-Public Use
  Company Number: US-AMGEN-TCS422103

PATIENT
  Age: 57 Year
  Sex: Male

DRUGS (1)
  1. ENBREL [Suspect]
     Indication: ANKYLOSING SPONDYLITIS
     Dosage: 50 MG, QWK
     Route: 058
     Dates: start: 20100616, end: 20101201

REACTIONS (5)
  - UPPER RESPIRATORY TRACT INFECTION [None]
  - ERYTHEMA OF EYELID [None]
  - COUGH [None]
  - EYELID PAIN [None]
  - EYELID OEDEMA [None]
